FAERS Safety Report 20718193 (Version 2)
Quarter: 2022Q2

REPORT INFORMATION
  Report Type: Report from Study
  Country: US (occurrence: US)
  Receive Date: 20220418
  Receipt Date: 20220516
  Transmission Date: 20220720
  Serious: Yes (Other)
  Sender: FDA-Public Use
  Company Number: US-HBP-2021US023947

PATIENT
  Age: 68 Year
  Sex: Male

DRUGS (7)
  1. TRUSELTIQ [Suspect]
     Active Substance: INFIGRATINIB
     Indication: Cholangiocarcinoma
     Dosage: 125 MILLIGRAM, QD
     Route: 048
     Dates: start: 202108
  2. TRUSELTIQ [Suspect]
     Active Substance: INFIGRATINIB
     Dosage: 100 MILLIGRAM, QD
     Route: 048
  3. TRUSELTIQ [Suspect]
     Active Substance: INFIGRATINIB
     Dosage: 75MG DAILY DAYS 1-21, OFF 7
     Route: 048
     Dates: end: 20220326
  4. CREON [Concomitant]
     Active Substance: PANCRELIPASE AMYLASE\PANCRELIPASE LIPASE\PANCRELIPASE PROTEASE
     Indication: Dyspepsia
  5. ACETAMINOPHEN\HYDROCODONE [Concomitant]
     Active Substance: ACETAMINOPHEN\HYDROCODONE
     Dosage: UNK
     Dates: start: 20220411
  6. MIRTAZAPINE [Concomitant]
     Active Substance: MIRTAZAPINE
     Dosage: UNK
     Dates: start: 20220412
  7. PHOSLO [Concomitant]
     Active Substance: CALCIUM ACETATE
     Dosage: 667 MILLIGRAM, BID WITH MEALS

REACTIONS (20)
  - Malignant neoplasm progression [Not Recovered/Not Resolved]
  - Lymphadenopathy [Not Recovered/Not Resolved]
  - Skin fissures [Unknown]
  - Skin exfoliation [Unknown]
  - Product complaint [Unknown]
  - Pain in extremity [Not Recovered/Not Resolved]
  - Blood phosphorus decreased [Unknown]
  - Renal function test abnormal [Unknown]
  - Drug ineffective [Unknown]
  - Dry skin [Unknown]
  - Dry eye [Recovered/Resolved]
  - Onychalgia [Recovered/Resolved]
  - Onychomadesis [Recovered/Resolved]
  - Abdominal pain upper [Recovered/Resolved]
  - Decreased appetite [Not Recovered/Not Resolved]
  - Weight decreased [Not Recovered/Not Resolved]
  - Fatigue [Unknown]
  - Visual impairment [Unknown]
  - Blood phosphorus increased [Unknown]
  - Alopecia [Unknown]

NARRATIVE: CASE EVENT DATE: 20220303
